FAERS Safety Report 9773298 (Version 1)
Quarter: 2013Q4

REPORT INFORMATION
  Report Type: Report from Study
  Country: US (occurrence: US)
  Receive Date: 20131219
  Receipt Date: 20131219
  Transmission Date: 20140711
  Serious: Yes (Other)
  Sender: FDA-Public Use
  Company Number: US-NAPPMUNDI-USA-2013-0109503

PATIENT
  Sex: Male

DRUGS (1)
  1. OXY CR TAB [Suspect]
     Indication: BACK PAIN
     Dosage: 60 MG, Q12H
     Route: 048
     Dates: start: 201003

REACTIONS (6)
  - Surgery [Unknown]
  - Intervertebral disc injury [Unknown]
  - Nerve injury [Unknown]
  - Gait disturbance [Unknown]
  - Pain [Unknown]
  - Inadequate analgesia [Unknown]
